FAERS Safety Report 10247693 (Version 3)
Quarter: 2014Q2

REPORT INFORMATION
  Report Type: Spontaneous
  Country: JP (occurrence: JP)
  Receive Date: 20140619
  Receipt Date: 20140630
  Transmission Date: 20141212
  Serious: Yes (Hospitalization)
  Sender: FDA-Public Use
  Company Number: JP-PFIZER INC-2014169075

PATIENT
  Age: 90 Year
  Sex: Female

DRUGS (1)
  1. CABASER [Suspect]
     Dosage: 0.5 MG, DAILY
     Route: 048

REACTIONS (1)
  - Fracture [Not Recovered/Not Resolved]
